FAERS Safety Report 6921481-5 (Version None)
Quarter: 2010Q3

REPORT INFORMATION
  Report Type: 
  Country: None (occurrence: None)
  Receive Date: 20100812
  Receipt Date: 20090605
  Transmission Date: 20110219
  Serious: No
  Sender: FDA-Public Use
  Company Number: A0788987A

PATIENT
  Age: 87 Year
  Sex: Male

DRUGS (2)
  1. TAGAMET HB 200 [Suspect]
     Route: 048
     Dates: start: 20090603
  2. ZITHROMAX [Concomitant]

REACTIONS (2)
  - EXPIRED DRUG ADMINISTERED [None]
  - FLATULENCE [None]
